FAERS Safety Report 6801421-X (Version None)
Quarter: 2010Q2

REPORT INFORMATION
  Report Type: 
  Country: None (occurrence: None)
  Receive Date: 20100629
  Receipt Date: 20100620
  Transmission Date: 20101027
  Serious: Yes (Other)
  Sender: FDA-Public Use
  Company Number: B0659975A

PATIENT
  Age: 60 Year
  Sex: Female
  Weight: 150 kg

DRUGS (2)
  1. ARIXTRA [Suspect]
     Dosage: 2.5MG PER DAY
     Route: 058
     Dates: start: 20100602, end: 20100606
  2. UNKNOWN DRUG [Concomitant]

REACTIONS (2)
  - CONJUNCTIVAL HAEMORRHAGE [None]
  - HAEMATURIA [None]
